FAERS Safety Report 5479546-3 (Version None)
Quarter: 2007Q4

REPORT INFORMATION
  Report Type: 
  Country: None (occurrence: None)
  Receive Date: 20071008
  Receipt Date: 20071001
  Transmission Date: 20080405
  Serious: Yes (Hospitalization)
  Sender: FDA-Public Use
  Company Number: ES-AVENTIS-200714646EU

PATIENT
  Age: 63 Year
  Sex: Female

DRUGS (8)
  1. ENOXAPARIN SODIUM [Suspect]
     Route: 058
     Dates: start: 20070709, end: 20070723
  2. DOGMATIL [Suspect]
     Indication: DIZZINESS
     Route: 048
     Dates: start: 20070717, end: 20070718
  3. COROPRES [Concomitant]
     Route: 048
     Dates: start: 20070711
  4. CODEINE SUL TAB [Concomitant]
     Route: 048
     Dates: start: 20070709, end: 20070725
  5. ADIRO [Concomitant]
     Route: 048
     Dates: start: 20070709
  6. CLOPERASTINE [Concomitant]
     Dates: start: 20070709, end: 20070725
  7. SINTROM [Concomitant]
     Route: 048
     Dates: start: 20070715
  8. HALOPERIDOL ESTEVE [Concomitant]
     Dates: start: 20070712, end: 20070725

REACTIONS (1)
  - ANGIOEDEMA [None]
